FAERS Safety Report 12785063 (Version 2)
Quarter: 2016Q3

REPORT INFORMATION
  Report Type: Spontaneous
  Country: AT (occurrence: AT)
  Receive Date: 20160927
  Receipt Date: 20160930
  Transmission Date: 20161109
  Serious: Yes (Life-Threatening, Hospitalization)
  Sender: FDA-Public Use
  Company Number: AT-PFIZER INC-2016445875

PATIENT
  Age: 67 Year
  Sex: Female

DRUGS (14)
  1. SOTACOR [Concomitant]
     Active Substance: SOTALOL HYDROCHLORIDE
     Dosage: 80 MG, UNK
     Dates: end: 20150804
  2. ZYPREXA [Concomitant]
     Active Substance: OLANZAPINE
     Dosage: 15 MG, 1X/DAY
  3. EXFORGE HCT [Concomitant]
     Active Substance: AMLODIPINE BESYLATE\HYDROCHLOROTHIAZIDE\VALSARTAN
     Dosage: UNK
     Dates: end: 20150804
  4. TEMESTA [Suspect]
     Active Substance: LORAZEPAM
     Dosage: 10 MG, SINGLE, (1 MG X 10)
     Route: 048
     Dates: start: 20150804, end: 20150804
  5. DOXAZOSIN MESILATE [Concomitant]
     Active Substance: DOXAZOSIN MESYLATE
     Dosage: 4 MG, UNK
     Dates: end: 20150804
  6. OLEOVIT D3 [Concomitant]
     Active Substance: CHOLECALCIFEROL
     Dosage: 20 GTT, WEEKLY
  7. RISPERDAL [Concomitant]
     Active Substance: RISPERIDONE
     Dosage: 2 MG, 2X/DAY
  8. OVESTIN [Concomitant]
     Active Substance: ESTRIOL
     Dosage: 1 DF, EVERY 3 DAYS
  9. TEMESTA [Suspect]
     Active Substance: LORAZEPAM
     Dosage: UNK
  10. ZOLPIDEM [Suspect]
     Active Substance: ZOLPIDEM\ZOLPIDEM TARTRATE
     Dosage: 100 MG, SINGLE (10 MG X 10)
     Route: 048
     Dates: start: 20150804, end: 20150804
  11. THROMBO ASS [Concomitant]
     Active Substance: ASPIRIN
     Dosage: 100 MG, UNK
     Dates: end: 20150804
  12. THYREX [Concomitant]
     Active Substance: LEVOTHYROXINE SODIUM
     Dosage: 50 UG, 1X/DAY
  13. CRESTOR [Concomitant]
     Active Substance: ROSUVASTATIN CALCIUM
     Dosage: 10 MG, UNK
     Dates: end: 20150804
  14. PANTOPRAZOLE SODIUM ANHYDROUS [Concomitant]
     Dosage: 20 MG, 1X/DAY

REACTIONS (5)
  - Suicide attempt [Recovered/Resolved]
  - Hypotension [Recovered/Resolved]
  - Somnolence [Recovered/Resolved]
  - Intentional overdose [Recovered/Resolved]
  - Toxicity to various agents [Recovered/Resolved]

NARRATIVE: CASE EVENT DATE: 20150804
